FAERS Safety Report 25017756 (Version 1)
Quarter: 2025Q1

REPORT INFORMATION
  Report Type: Spontaneous
  Country: US (occurrence: None)
  Receive Date: 20250226
  Receipt Date: 20250226
  Transmission Date: 20250409
  Serious: Yes (Hospitalization)
  Sender: FDA-CTU
  Company Number: None

PATIENT
  Age: 60 Year
  Sex: Female

DRUGS (2)
  1. TAVNEOS [Suspect]
     Active Substance: AVACOPAN
     Dosage: FREQUENCY : TWICE A DAY;?
     Route: 048
  2. TPN [Suspect]
     Active Substance: AMINO ACIDS\DEXTROSE\ELECTROLYTES NOS\SOYBEAN OIL

REACTIONS (7)
  - Weight decreased [None]
  - Cardiac failure congestive [None]
  - Crohn^s disease [None]
  - Sepsis [None]
  - Renal failure [None]
  - Anti-neutrophil cytoplasmic antibody positive vasculitis [None]
  - Nausea [None]

NARRATIVE: CASE EVENT DATE: 20250226
